FAERS Safety Report 7231724-9 (Version None)
Quarter: 2011Q1

REPORT INFORMATION
  Report Type: 
  Country: None (occurrence: None)
  Receive Date: 20110118
  Receipt Date: 20110111
  Transmission Date: 20110831
  Serious: Yes (Hospitalization)
  Sender: FDA-Public Use
  Company Number: JP-PFIZER INC-2010179565

PATIENT
  Age: 88 Year
  Sex: Female

DRUGS (9)
  1. GASTER [Suspect]
     Dosage: 20 MG, 1X/DAY
     Route: 048
     Dates: start: 20100917, end: 20101220
  2. PLETAL [Suspect]
     Dosage: 400 MG, 1X/DAY
     Route: 048
     Dates: start: 20100917, end: 20101220
  3. SENEVACUL [Concomitant]
     Dosage: UNK
     Route: 048
  4. THYRADIN S [Concomitant]
     Dosage: UNK
     Route: 048
  5. MAINTATE [Concomitant]
     Dosage: UNK
     Route: 048
  6. PREDONINE [Concomitant]
     Dosage: UNK
     Route: 048
  7. SELBEX [Concomitant]
     Dosage: UNK
     Route: 048
  8. LIPITOR [Suspect]
     Dosage: 10 MG, 1X/DAY
     Route: 048
     Dates: start: 20100917, end: 20101220
  9. RISEDRONATE SODIUM [Concomitant]
     Dosage: UNK
     Route: 048

REACTIONS (1)
  - HEPATIC FUNCTION ABNORMAL [None]
